FAERS Safety Report 20777577 (Version 1)
Quarter: 2022Q2

REPORT INFORMATION
  Report Type: Other
  Country: GB (occurrence: GB)
  Receive Date: 20220503
  Receipt Date: 20220503
  Transmission Date: 20220721
  Serious: Yes (Other)
  Sender: FDA-Public Use
  Company Number: GB-CELLTRION INC.-2022GB005606

PATIENT

DRUGS (5)
  1. INFLIXIMAB [Suspect]
     Active Substance: INFLIXIMAB
     Indication: Crohn^s disease
     Dosage: CURRENTLY AT 8TH DOSE; EVERY 8 WEEKS; PHARMACEUTICAL DOSE FORM: 200
     Route: 065
     Dates: start: 20220411
  2. INFLIXIMAB [Suspect]
     Active Substance: INFLIXIMAB
     Indication: Amnesia
  3. AZATHIOPRINE [Concomitant]
     Active Substance: AZATHIOPRINE
     Dosage: 25MG AND 50MG TABLETS; PHARMACEUTICAL DOSE FORM: 245
  4. CHOLECALCIFEROL [Concomitant]
     Active Substance: CHOLECALCIFEROL
     Dosage: EVERY 2 MONTHS; PHARMACEUTICAL DOSE FORM: 5
  5. VITAMINS NOS [Concomitant]
     Active Substance: VITAMINS
     Dosage: SAINSBURYS BRAND

REACTIONS (3)
  - Aphasia [Unknown]
  - Amnesia [Unknown]
  - Off label use [Unknown]

NARRATIVE: CASE EVENT DATE: 20220201
